FAERS Safety Report 5479076-9 (Version None)
Quarter: 2007Q4

REPORT INFORMATION
  Report Type: 
  Country: None (occurrence: None)
  Receive Date: 20071006
  Receipt Date: 20070927
  Transmission Date: 20080405
  Serious: Yes (Other)
  Sender: FDA-Public Use
  Company Number: FR-PFIZER INC-2007081306

PATIENT
  Age: 60 Year
  Sex: Male

DRUGS (3)
  1. TAHOR [Suspect]
     Indication: PROPHYLAXIS
  2. SECTRAL [Concomitant]
  3. KARDEGIC [Concomitant]

REACTIONS (1)
  - DIABETES MELLITUS [None]
